FAERS Safety Report 5973890-9 (Version None)
Quarter: 2008Q4

REPORT INFORMATION
  Report Type: 
  Country: None (occurrence: None)
  Receive Date: 20081125
  Receipt Date: 20081120
  Transmission Date: 20090506
  Serious: Yes (Death)
  Sender: FDA-Public Use
  Company Number: 2008SP022383

PATIENT
  Age: 77 Year
  Sex: Male

DRUGS (3)
  1. INTRON A [Suspect]
     Indication: MALIGNANT MELANOMA
     Dosage: 40 MIU; IV, 20 MIU; TIW; IV, 15 MIU; TIW; IV
     Route: 042
     Dates: start: 20080331, end: 20080429
  2. INTRON A [Suspect]
     Indication: MALIGNANT MELANOMA
     Dosage: 40 MIU; IV, 20 MIU; TIW; IV, 15 MIU; TIW; IV
     Route: 042
     Dates: start: 20080505, end: 20080728
  3. INTRON A [Suspect]
     Indication: MALIGNANT MELANOMA
     Dosage: 40 MIU; IV, 20 MIU; TIW; IV, 15 MIU; TIW; IV
     Route: 042
     Dates: start: 20080730, end: 20080922

REACTIONS (3)
  - ACUTE MYOCARDIAL INFARCTION [None]
  - MALAISE [None]
  - NEUTROPENIA [None]
